FAERS Safety Report 6075389-0 (Version None)
Quarter: 2009Q1

REPORT INFORMATION
  Report Type: 
  Country: None (occurrence: None)
  Receive Date: 20090212
  Receipt Date: 20090204
  Transmission Date: 20090719
  Serious: Yes (Hospitalization, Other)
  Sender: FDA-Public Use
  Company Number: US-PURDUE-USA_2009_0036855

PATIENT
  Age: 65 Year
  Sex: Male

DRUGS (4)
  1. OXYCONTIN [Suspect]
     Indication: PAIN
     Dosage: UNK, SEE TEXT
     Dates: start: 20010901
  2. METHOTREXATE [Suspect]
     Indication: DRUG USE FOR UNKNOWN INDICATION
  3. ULTRACET [Suspect]
     Indication: DRUG USE FOR UNKNOWN INDICATION
  4. ALCOHOL                            /00002101/ [Suspect]
     Indication: ALCOHOL USE

REACTIONS (7)
  - ABDOMINAL PAIN [None]
  - ALCOHOL ABUSE [None]
  - ASCITES [None]
  - DEMENTIA [None]
  - FEELING ABNORMAL [None]
  - LIVER DISORDER [None]
  - MENTAL IMPAIRMENT [None]
